FAERS Safety Report 9908287 (Version 1)
Quarter: 2014Q1

REPORT INFORMATION
  Report Type: Spontaneous
  Country: US (occurrence: None)
  Receive Date: 20140214
  Receipt Date: 20140214
  Transmission Date: 20141002
  Serious: Yes (Other)
  Sender: FDA-Public Use
  Company Number: None

PATIENT
  Sex: 0

DRUGS (2)
  1. MIRALAX [Suspect]
  2. MIRAPEX [Suspect]

REACTIONS (5)
  - Wrong drug administered [None]
  - Dizziness [None]
  - Nausea [None]
  - Vomiting [None]
  - Flushing [None]
